FAERS Safety Report 10152672 (Version 2)
Quarter: 2014Q2

REPORT INFORMATION
  Report Type: Spontaneous
  Country: US (occurrence: US)
  Receive Date: 20140505
  Receipt Date: 20140528
  Transmission Date: 20141212
  Serious: Yes (Hospitalization)
  Sender: FDA-Public Use
  Company Number: US-BAYER-2014-064645

PATIENT
  Age: 36 Year
  Sex: Female
  Weight: 86.17 kg

DRUGS (8)
  1. MIRENA [Suspect]
     Indication: CONTRACEPTION
     Dosage: 20 MCG/24HR, CONT
     Route: 015
     Dates: start: 20111219, end: 20120419
  2. MIRENA [Suspect]
     Indication: CONTRACEPTION
     Dosage: 20 MCG/24HR, CONT
     Dates: start: 200911, end: 201110
  3. PROZAC [Concomitant]
     Indication: DEPRESSION
     Dosage: 20 MG, UNK
     Dates: start: 201101, end: 201301
  4. FLAGYL [Concomitant]
     Dosage: 500 MG, UNK
  5. WELLBUTRIN [Concomitant]
     Dosage: 150 MG, UNK
  6. PRENATAL VITAMINS [VIT C,B5,B12,D2,B3,B6,RETINOL PALMIT,B2,B1 MONO [Concomitant]
  7. KEFLEX [Concomitant]
     Dosage: 500 MG, UNK
  8. FLUOXETINE [Concomitant]

REACTIONS (9)
  - Uterine perforation [None]
  - Injury [None]
  - Pain [None]
  - Emotional distress [None]
  - Depression [None]
  - Anxiety [None]
  - Depressed mood [None]
  - Scar [None]
  - Insomnia [None]
